FAERS Safety Report 7646859-6 (Version None)
Quarter: 2011Q3

REPORT INFORMATION
  Report Type: 
  Country: None (occurrence: None)
  Receive Date: 20110725
  Receipt Date: 20110707
  Transmission Date: 20111222
  Serious: Yes (Death, Other)
  Sender: FDA-Public Use
  Company Number: JHP201100359

PATIENT
  Age: 23 Year
  Sex: Male

DRUGS (17)
  1. DANTROLENE SODIUM [Suspect]
     Indication: HYPERTHERMIA MALIGNANT
     Dosage: 1000MG, TOTAL, INTRAVENOUS
     Route: 042
  2. INSULIN [Concomitant]
  3. ATROPINE SULFATE [Concomitant]
  4. DEXTROSE 5% [Concomitant]
  5. CALCIUM CHLORIDE [Concomitant]
  6. ISOFLURANE [Concomitant]
  7. LASIX [Concomitant]
  8. LEVOPHED (NOREPINEPHRINE BITARTRATE) VASOPRESSOR [Concomitant]
  9. PROPOFOL [Concomitant]
  10. DESFLURANE [Concomitant]
  11. MIDAZOLAM HYDROCHLORIDE [Concomitant]
  12. ROCURONIUM BROMIDE [Concomitant]
  13. ANCEF [Concomitant]
  14. DILAUDID [Concomitant]
  15. BICARBONATE (SODIUM BICARBONATE) [Concomitant]
  16. VASOPRESSOR [Concomitant]
  17. FENTANYL [Concomitant]

REACTIONS (3)
  - HYPOTENSION [None]
  - HYPERKALAEMIA [None]
  - CARDIAC DISORDER [None]
